FAERS Safety Report 19443823 (Version 1)
Quarter: 2021Q2

REPORT INFORMATION
  Report Type: Spontaneous
  Country: JP (occurrence: JP)
  Receive Date: 20210621
  Receipt Date: 20210621
  Transmission Date: 20210717
  Serious: Yes (Other)
  Sender: FDA-Public Use
  Company Number: JP-DSJP-DSJ-2021-117394

PATIENT
  Age: 8 Decade
  Sex: Female

DRUGS (1)
  1. LIXIANA OD TABLETS 30MG [Suspect]
     Active Substance: EDOXABAN TOSYLATE
     Indication: DEEP VEIN THROMBOSIS
     Dosage: 30 MG, QD
     Route: 048
     Dates: start: 202105

REACTIONS (4)
  - Oropharyngeal pain [Unknown]
  - Malaise [Unknown]
  - Viral infection [Unknown]
  - Neutrophil count decreased [Unknown]
